FAERS Safety Report 13791820 (Version 1)
Quarter: 2017Q3

REPORT INFORMATION
  Report Type: Spontaneous
  Country: US (occurrence: US)
  Receive Date: 20170725
  Receipt Date: 20170725
  Transmission Date: 20171127
  Serious: Yes (Disabling)
  Sender: FDA-Public Use
  Company Number: None

PATIENT
  Age: 32 Year
  Sex: Female
  Weight: 49.5 kg

DRUGS (2)
  1. CIPROFLOXAN 500 MG TAB [Suspect]
     Active Substance: CIPROFLOXACIN
     Indication: URINARY TRACT INFECTION
     Dosage: ?          QUANTITY:14 TABLET(S);?
     Route: 048
     Dates: start: 20170411, end: 20170412
  2. CIPROFLOXAN 500 MG TAB [Suspect]
     Active Substance: CIPROFLOXACIN
     Indication: GENERAL SYMPTOM
     Dosage: ?          QUANTITY:14 TABLET(S);?
     Route: 048
     Dates: start: 20170411, end: 20170412

REACTIONS (9)
  - Gait disturbance [None]
  - Limb discomfort [None]
  - Bone pain [None]
  - Pain in extremity [None]
  - Paranoia [None]
  - Tendon pain [None]
  - Hallucination [None]
  - Depression [None]
  - Feeling abnormal [None]

NARRATIVE: CASE EVENT DATE: 20170411
